FAERS Safety Report 8464466-2 (Version None)
Quarter: 2012Q2

REPORT INFORMATION
  Report Type: 
  Country: None (occurrence: None)
  Receive Date: 20120626
  Receipt Date: 20120618
  Transmission Date: 20120825
  Serious: Yes (Other)
  Sender: FDA-Public Use
  Company Number: US-UCBSA-060013

PATIENT

DRUGS (2)
  1. VIMPAT [Suspect]
  2. KEPPRA [Suspect]

REACTIONS (1)
  - TOXIC EPIDERMAL NECROLYSIS [None]
